FAERS Safety Report 13700883 (Version 1)
Quarter: 2017Q2

REPORT INFORMATION
  Report Type: Spontaneous
  Country: US (occurrence: US)
  Receive Date: 20170628
  Receipt Date: 20170628
  Transmission Date: 20170830
  Serious: Yes (Disabling)
  Sender: FDA-Public Use
  Company Number: None

PATIENT
  Age: 74 Year
  Sex: Female
  Weight: 67.5 kg

DRUGS (10)
  1. VITAMIN D [Concomitant]
     Active Substance: CHOLECALCIFEROL
  2. SIMVASTATIN. [Concomitant]
     Active Substance: SIMVASTATIN
  3. GLUCOSAMINE [Concomitant]
     Active Substance: GLUCOSAMINE
  4. ASPIRIN. [Concomitant]
     Active Substance: ASPIRIN
  5. CALCIUM [Concomitant]
     Active Substance: CALCIUM
  6. CHLORHEXADINE GLUCONATE ORAL RIN [Suspect]
     Active Substance: CHLORHEXIDINE GLUCONATE
     Indication: GINGIVITIS
     Dosage: OTHER ROUTE:RINSE FOR 30 SECONDS?
     Dates: start: 20170509, end: 20170517
  7. VITAMIN C [Concomitant]
     Active Substance: ASCORBIC ACID
  8. FISH OIL [Concomitant]
     Active Substance: FISH OIL
  9. VITAMIN B COMPLEX [Concomitant]
     Active Substance: CYANOCOBALAMIN\DEXPANTHENOL\NIACINAMIDE\PYRIDOXINE HYDROCHLORIDE\RIBOFLAVIN 5^-PHOSPHATE SODIUM\THIAMINE HYDROCHLORIDE\VITAMIN B COMPLEX
  10. COQ10 [Concomitant]
     Active Substance: UBIDECARENONE

REACTIONS (6)
  - Tendon pain [None]
  - Dizziness [None]
  - Myalgia [None]
  - Feeling abnormal [None]
  - Deafness [None]
  - Drug hypersensitivity [None]

NARRATIVE: CASE EVENT DATE: 20170509
